FAERS Safety Report 10243338 (Version 2)
Quarter: 2014Q3

REPORT INFORMATION
  Report Type: Spontaneous
  Country: US (occurrence: US)
  Receive Date: 20140618
  Receipt Date: 20140708
  Transmission Date: 20150326
  Serious: Yes (Death)
  Sender: FDA-Public Use
  Company Number: PHEH2014US012142

PATIENT
  Age: 65 Year
  Sex: Male
  Weight: 108.8 kg

DRUGS (1)
  1. ZOMETA [Suspect]
     Active Substance: ZOLEDRONIC ACID
     Dosage: 4 MG, ONCE/SINGLE
     Route: 042
     Dates: start: 20100809

REACTIONS (3)
  - Sepsis [Fatal]
  - Prostate cancer metastatic [Fatal]
  - Renal failure [Fatal]

NARRATIVE: CASE EVENT DATE: 20100809
